FAERS Safety Report 21996499 (Version 1)
Quarter: 2023Q1

REPORT INFORMATION
  Report Type: Spontaneous
  Country: US (occurrence: US)
  Receive Date: 20230215
  Receipt Date: 20230215
  Transmission Date: 20230417
  Serious: No
  Sender: FDA-Public Use
  Company Number: US-ALLERGAN-2204520US

PATIENT
  Age: 66 Year
  Sex: Female

DRUGS (6)
  1. VIIBRYD [Suspect]
     Active Substance: VILAZODONE HYDROCHLORIDE
     Indication: Depression
     Dosage: 10 MG, QD
     Dates: start: 202201
  2. VIIBRYD [Suspect]
     Active Substance: VILAZODONE HYDROCHLORIDE
     Indication: Bipolar disorder
  3. NADOLOL [Concomitant]
     Active Substance: NADOLOL
     Dosage: 40 MG, QD
  4. LEVOTHYROXINE [Concomitant]
     Active Substance: LEVOTHYROXINE
     Dosage: 75 ?G
  5. GABAPENTIN [Concomitant]
     Active Substance: GABAPENTIN
     Dosage: 600 MG, TID
  6. SEROQUEL [Concomitant]
     Active Substance: QUETIAPINE FUMARATE
     Dosage: 50 MG, BID

REACTIONS (4)
  - Contraindicated product prescribed [Unknown]
  - Diarrhoea [Not Recovered/Not Resolved]
  - Abdominal pain upper [Not Recovered/Not Resolved]
  - Dyspepsia [Not Recovered/Not Resolved]
